FAERS Safety Report 6442819-1 (Version None)
Quarter: 2009Q4

REPORT INFORMATION
  Report Type: 
  Country: None (occurrence: None)
  Receive Date: 20091113
  Receipt Date: 20091103
  Transmission Date: 20100525
  Serious: Yes (Life-Threatening, Hospitalization)
  Sender: FDA-Public Use
  Company Number: 235825K09USA

PATIENT
  Age: 53 Year
  Sex: Female
  Weight: 110 kg

DRUGS (5)
  1. REBIF [Suspect]
     Indication: MULTIPLE SCLEROSIS
     Dosage: 44 MCG, 3 IN 1 WEEKS, SUBCUTANEOUS
     Route: 058
     Dates: start: 20060101, end: 20090501
  2. HYDROCHLOROTHIAZIDE [Concomitant]
  3. ZOCOR [Concomitant]
  4. CALCIUM ACETATE (CALCIUM ACETATE) [Concomitant]
  5. GABAPENTIN [Concomitant]

REACTIONS (16)
  - ABDOMINAL PAIN UPPER [None]
  - ANAEMIA [None]
  - AREFLEXIA [None]
  - DRUG TOXICITY [None]
  - GASTROOESOPHAGEAL REFLUX DISEASE [None]
  - GLAUCOMA [None]
  - HAEMODIALYSIS [None]
  - HYPERTENSION [None]
  - HYPOTENSION [None]
  - LEUKOCYTOSIS [None]
  - LIPASE INCREASED [None]
  - LOSS OF CONSCIOUSNESS [None]
  - RENAL FAILURE ACUTE [None]
  - RENAL FAILURE CHRONIC [None]
  - RESPIRATORY FAILURE [None]
  - TYPE 2 DIABETES MELLITUS [None]
